FAERS Safety Report 9352309 (Version 1)
Quarter: 2013Q2

REPORT INFORMATION
  Report Type: Spontaneous
  Country: DE (occurrence: DE)
  Receive Date: 20130617
  Receipt Date: 20130617
  Transmission Date: 20140414
  Serious: Yes (Congenital Anomaly)
  Sender: FDA-Public Use
  Company Number: DE-BAUSCH-BL-2013-003553

PATIENT
  Age: 0 Year
  Sex: Female
  Weight: 3.33 kg

DRUGS (3)
  1. FLOXAL [Suspect]
     Indication: OPHTHALMIC HERPES ZOSTER
     Route: 064
     Dates: start: 20070921, end: 20071121
  2. ZOVIRAX [Suspect]
     Indication: OPHTHALMIC HERPES ZOSTER
     Route: 064
     Dates: start: 20070921, end: 20071121
  3. ORTHOMOL NATAL [Concomitant]
     Indication: PROPHYLAXIS OF NEURAL TUBE DEFECT
     Route: 064

REACTIONS (1)
  - Tracheal stenosis [Recovered/Resolved with Sequelae]
